FAERS Safety Report 9669685 (Version 2)
Quarter: 2013Q4

REPORT INFORMATION
  Report Type: Spontaneous
  Country: IT (occurrence: IT)
  Receive Date: 20131105
  Receipt Date: 20131219
  Transmission Date: 20140711
  Serious: Yes (Hospitalization, Other)
  Sender: FDA-Public Use
  Company Number: IT-BRISTOL-MYERS SQUIBB COMPANY-19634732

PATIENT
  Age: 83 Year
  Sex: Male

DRUGS (8)
  1. COUMADIN TABS 5 MG [Suspect]
     Indication: ATRIAL FIBRILLATION
     Route: 048
     Dates: start: 20080101, end: 20130907
  2. PLETAL [Suspect]
     Indication: THROMBOSIS PROPHYLAXIS
     Route: 048
     Dates: start: 20080101, end: 20130907
  3. VERAPAMIL HCL [Concomitant]
  4. LOBIVON [Concomitant]
     Indication: HYPERTENSION
     Dosage: 5 MG TABS
  5. TAMSULOSIN [Concomitant]
     Dosage: 0.4 MG CAPS
  6. SUCRALFATE [Concomitant]
     Route: 048
  7. COAPROVEL [Concomitant]
     Dosage: 150/12.5 MG TABS
  8. LOSEC [Concomitant]
     Dosage: 10 MG CAPS

REACTIONS (4)
  - Melaena [Recovering/Resolving]
  - Anaemia [Recovering/Resolving]
  - Haemorrhoids [Recovering/Resolving]
  - Haemorrhage [Recovering/Resolving]
